FAERS Safety Report 21725591 (Version 1)
Quarter: 2022Q4

REPORT INFORMATION
  Report Type: Report from Study
  Country: DE (occurrence: DE)
  Receive Date: 20221214
  Receipt Date: 20221214
  Transmission Date: 20230112
  Serious: Yes (Hospitalization, Other)
  Sender: FDA-Public Use
  Company Number: DE-JNJFOC-20221218374

PATIENT
  Age: 5 Decade
  Sex: Female

DRUGS (11)
  1. REMICADE [Suspect]
     Active Substance: INFLIXIMAB
     Indication: Psoriatic arthropathy
     Route: 041
  2. SIMPONI [Suspect]
     Active Substance: GOLIMUMAB
     Indication: Psoriatic arthropathy
     Route: 058
     Dates: start: 20220209, end: 20220309
  3. ETORICOXIB [Suspect]
     Active Substance: ETORICOXIB
     Indication: Psoriatic arthropathy
     Route: 065
     Dates: start: 20211214, end: 20220218
  4. ETORICOXIB [Suspect]
     Active Substance: ETORICOXIB
     Route: 065
     Dates: start: 20220227
  5. RINVOQ [Suspect]
     Active Substance: UPADACITINIB
     Indication: Psoriatic arthropathy
     Route: 065
     Dates: start: 20211029, end: 20220105
  6. RINVOQ [Suspect]
     Active Substance: UPADACITINIB
     Route: 065
     Dates: start: 20220209, end: 20220421
  7. PREDNISOLONE [Concomitant]
     Active Substance: PREDNISOLONE
  8. BISOPROLOL [Concomitant]
     Active Substance: BISOPROLOL
  9. PANTOPRAZOLE [Concomitant]
     Active Substance: PANTOPRAZOLE
  10. PREDNISONE [Concomitant]
     Active Substance: PREDNISONE
  11. ERGOCALCIFEROL [Concomitant]
     Active Substance: ERGOCALCIFEROL

REACTIONS (3)
  - Arthralgia [Recovered/Resolved]
  - Anaphylactic reaction [Unknown]
  - Essential hypertension [Unknown]

NARRATIVE: CASE EVENT DATE: 20220218
